FAERS Safety Report 23522227 (Version 1)
Quarter: 2024Q1

REPORT INFORMATION
  Report Type: Spontaneous
  Country: CN (occurrence: CN)
  Receive Date: 20240214
  Receipt Date: 20240214
  Transmission Date: 20240410
  Serious: Yes (Hospitalization)
  Sender: FDA-Public Use
  Company Number: CN-Bio-Thera Solutions, Ltd.-2153197

PATIENT
  Age: 69 Year
  Sex: Female

DRUGS (1)
  1. AVZIVI [Suspect]
     Active Substance: BEVACIZUMAB-TNJN
     Route: 041
     Dates: start: 20231115, end: 20231115

REACTIONS (1)
  - Haematuria [Unknown]

NARRATIVE: CASE EVENT DATE: 20231209
